FAERS Safety Report 5979418-1 (Version None)
Quarter: 2008Q4

REPORT INFORMATION
  Report Type: 
  Country: None (occurrence: None)
  Receive Date: 20081204
  Receipt Date: 20081126
  Transmission Date: 20090506
  Serious: Yes (Hospitalization)
  Sender: FDA-Public Use
  Company Number: FR-ASTRAZENECA-2008CG01151

PATIENT
  Age: 41 Year
  Sex: Male

DRUGS (13)
  1. FOSCAVIR [Suspect]
     Indication: CYTOMEGALOVIRUS INFECTION
     Route: 042
     Dates: start: 20080408, end: 20080414
  2. FOSCAVIR [Suspect]
     Route: 042
     Dates: start: 20080415, end: 20080616
  3. FOSCAVIR [Suspect]
     Route: 042
     Dates: start: 20080616, end: 20080716
  4. FOSCAVIR [Suspect]
     Route: 042
     Dates: start: 20080818
  5. CYMEVAN [Suspect]
     Indication: CYTOMEGALOVIRUS INFECTION
     Route: 042
     Dates: start: 20080612, end: 20080615
  6. CYMEVAN [Suspect]
     Route: 042
     Dates: start: 20080616, end: 20080715
  7. CYMEVAN [Suspect]
     Route: 042
     Dates: start: 20080716
  8. AVLOCARDYL [Concomitant]
     Route: 048
  9. INIPOMP [Concomitant]
     Route: 048
  10. SODIUM BICARBONATE [Concomitant]
     Route: 048
  11. CELLCEPT [Concomitant]
     Route: 048
     Dates: end: 20081024
  12. PRODAFALGAN [Concomitant]
     Route: 042
  13. SOLUPRED [Concomitant]
     Route: 048

REACTIONS (2)
  - DIPLOPIA [None]
  - PARAESTHESIA [None]
